FAERS Safety Report 6823481-2 (Version None)
Quarter: 2010Q3

REPORT INFORMATION
  Report Type: 
  Country: None (occurrence: None)
  Receive Date: 20100708
  Receipt Date: 20100707
  Transmission Date: 20110219
  Serious: Yes (Hospitalization)
  Sender: FDA-Public Use
  Company Number: PHHO2010JP09700

PATIENT
  Sex: Female
  Weight: 54 kg

DRUGS (5)
  1. TASIGNA [Suspect]
     Indication: GASTROINTESTINAL STROMAL TUMOUR
     Dosage: 400 MG, BID
     Route: 048
     Dates: start: 20100603, end: 20100624
  2. ZYRTEC [Concomitant]
  3. ALOSENN [Concomitant]
  4. LOXONIN [Concomitant]
  5. NEUROTROPIN [Concomitant]
     Indication: BACK PAIN

REACTIONS (4)
  - CHEST DISCOMFORT [None]
  - MALAISE [None]
  - PLEURAL EFFUSION [None]
  - PULMONARY INFARCTION [None]
